FAERS Safety Report 4419986-4 (Version None)
Quarter: 2004Q3

REPORT INFORMATION
  Report Type: 
  Country: None (occurrence: None)
  Receive Date: 20040809
  Receipt Date: 20040318
  Transmission Date: 20050211
  Serious: No
  Sender: FDA-Public Use
  Company Number: US-GLAXOSMITHKLINE-A0503451A

PATIENT
  Age: 82 Year
  Sex: Female

DRUGS (4)
  1. PAXIL [Suspect]
     Indication: MOOD SWINGS
     Dosage: 5MG PER DAY
     Route: 048
  2. NAMENDA [Suspect]
     Dosage: 1TAB TWICE PER DAY
     Dates: start: 20040301
  3. ARICEPT [Concomitant]
  4. LASIX [Concomitant]

REACTIONS (2)
  - DYSKINESIA [None]
  - TREMOR [None]
